FAERS Safety Report 7728419-1 (Version None)
Quarter: 2011Q3

REPORT INFORMATION
  Report Type: 
  Country: None (occurrence: None)
  Receive Date: 20110905
  Receipt Date: 20110823
  Transmission Date: 20111222
  Serious: Yes (Other)
  Sender: FDA-Public Use
  Company Number: GB-PFIZER INC-2011168139

PATIENT
  Sex: Male
  Weight: 83.5 kg

DRUGS (10)
  1. MORPHINE [Concomitant]
     Indication: PAIN
     Dosage: 30 MG, 2X/DAY
     Route: 048
     Dates: start: 20100921
  2. AMLODIPINE [Concomitant]
     Indication: CARDIAC DISORDER
     Dosage: 5 MG, 1X/DAY
     Route: 048
     Dates: start: 20090101
  3. CO-DANTHRAMER [Concomitant]
     Indication: PAIN
     Dosage: 25/200, 1X/DAY
     Route: 048
     Dates: start: 20090101
  4. NITRAZEPAM [Concomitant]
     Indication: SLEEP DISORDER THERAPY
     Dosage: 5 MG, 1X/DAY
     Route: 048
     Dates: start: 20100101
  5. PF-02341066 [Suspect]
     Indication: NON-SMALL CELL LUNG CANCER
     Dosage: 250 MG, 2X/DAY
     Route: 048
     Dates: start: 20110411
  6. CARBOCISTEINE [Concomitant]
     Indication: ANTIALLERGIC THERAPY
     Dosage: 375 MG, 2X/DAY
     Route: 048
     Dates: start: 20100101
  7. BENDROFLUMETHIAZIDE [Concomitant]
     Indication: DIURETIC THERAPY
     Dosage: 2.5 MG, 1X/DAY
     Route: 048
     Dates: start: 20050101
  8. HYOSCINE BUTYLBROMIDE [Concomitant]
     Indication: SECRETION DISCHARGE
     Dosage: 10 MG, 4X/DAY
     Route: 048
     Dates: start: 20080101
  9. LACTULOSE [Concomitant]
     Indication: CONSTIPATION
     Dosage: 5-10 ML, AS NEEDED
     Route: 048
     Dates: start: 20090101
  10. AMLODIPINE [Concomitant]
     Indication: HYPERTENSION

REACTIONS (2)
  - NEOPLASM MALIGNANT [None]
  - SMALL CELL LUNG CANCER STAGE UNSPECIFIED [None]
